FAERS Safety Report 4625982-4 (Version None)
Quarter: 2005Q1

REPORT INFORMATION
  Report Type: 
  Country: None (occurrence: None)
  Receive Date: 20050330
  Receipt Date: 20050316
  Transmission Date: 20050727
  Serious: Yes (Hospitalization)
  Sender: FDA-Public Use
  Company Number: 2005046252

PATIENT
  Age: 66 Year
  Sex: Male
  Weight: 93.8946 kg

DRUGS (2)
  1. DETROL LA [Suspect]
     Indication: HYPERTONIC BLADDER
     Dosage: 2 MG ( 2MG, 1 IN 1 D), ORAL
     Route: 048
     Dates: start: 19870101
  2. GINKO BILOBA (GINKO BILOBA) [Concomitant]

REACTIONS (6)
  - ARTERIAL OCCLUSIVE DISEASE [None]
  - BLOOD GLUCOSE ABNORMAL [None]
  - CONSTIPATION [None]
  - DRUG EFFECT DECREASED [None]
  - HYPERTENSION [None]
  - WEIGHT INCREASED [None]
